FAERS Safety Report 8798438 (Version 2)
Quarter: 2012Q4

REPORT INFORMATION
  Report Type: 
  Country: PE (occurrence: PE)
  Receive Date: 20120920
  Receipt Date: 20120927
  Transmission Date: 20130627
  Serious: Yes (Death, Hospitalization)
  Sender: FDA-Public Use
  Company Number: PE-PFIZER INC-2012232465

PATIENT
  Age: 84 Year
  Sex: Male

DRUGS (4)
  1. LYRICA [Suspect]
     Indication: DIABETIC NEUROPATHY
     Dosage: 150 mg, 1x/day
     Route: 048
     Dates: start: 2008, end: 20120413
  2. METFORMIN [Concomitant]
     Indication: DIABETES MELLITUS
     Dosage: UNK
     Route: 048
  3. GLIDIABET [Concomitant]
     Indication: DIABETES MELLITUS
     Route: 048
  4. ASPIRIN ^BAYER^ [Concomitant]
     Route: 048

REACTIONS (2)
  - Myocardial infarction [Fatal]
  - Myocardial infarction [Unknown]
